FAERS Safety Report 9036707 (Version 2)
Quarter: 2013Q1

REPORT INFORMATION
  Report Type: Spontaneous
  Country: IT (occurrence: None)
  Receive Date: 20130114
  Receipt Date: 20130207
  Transmission Date: 20140127
  Serious: Yes (Hospitalization)
  Sender: FDA-Public Use
  Company Number: TIF2013A00006

PATIENT
  Age: 73 Year
  Sex: Male

DRUGS (10)
  1. LANSOPRAZOLE (LANSOPRAZOLE) [Suspect]
     Indication: GASTROOESOPHAGEAL REFLUX DISEASE
     Dosage: DAYS
     Route: 048
     Dates: start: 20121226, end: 20130108
  2. CLENIL [Suspect]
     Indication: PNEUMONITIS
     Dosage: INTRA-NASAL
     Route: 045
     Dates: start: 20121226, end: 20130101
  3. BRONCOVALEAS [Suspect]
     Indication: PNEUMONITIS
     Dosage: 5 DOSES (0.5 %)
     Route: 055
     Dates: start: 20130101, end: 20130107
  4. CARDIOASPIRIN (ACETYLSALICYLIC ACID) [Suspect]
     Indication: ANTICOAGULANT THERAPY
     Dosage: (100 MG, 1 IN 1 D)
     Route: 048
     Dates: start: 20121226, end: 20121229
  5. LASIX (FUROSEMIDE) [Suspect]
     Indication: POLYURIA
     Dosage: (25 MG, 1 IN 1 D)
     Route: 048
     Dates: start: 20121226, end: 20130108
  6. TRIATEC [Suspect]
     Indication: ESSENTIAL HYPERTENSION
     Dosage: (2.5 MG)
     Route: 048
     Dates: start: 20121226, end: 20130108
  7. NITRO-DUR [Suspect]
     Indication: ANGINA UNSTABLE
     Dosage: (1O MG, 1 IN 1 D)
     Route: 062
  8. LEVOFLOXACIN (LEVOFLOXACIN) [Suspect]
     Indication: PNEUMONITIS
     Route: 048
     Dates: start: 20121226, end: 20130104
  9. METFORMIN (METFORMIN) [Suspect]
     Indication: TYPE 2 DIABETES MELLITUS
     Route: 048
     Dates: start: 20121226, end: 20121229
  10. CARVEDILOL (CARVEDILOL) [Suspect]
     Indication: CARDIOMEGALY
     Route: 048
     Dates: start: 20121226, end: 20130108

REACTIONS (1)
  - Tendonitis [None]
